FAERS Safety Report 23530589 (Version 2)
Quarter: 2024Q4

REPORT INFORMATION
  Report Type: Spontaneous
  Country: US (occurrence: US)
  Receive Date: 20240216
  Receipt Date: 20241111
  Transmission Date: 20250114
  Serious: Yes (Life-Threatening, Hospitalization)
  Sender: MACLEODS
  Company Number: None

PATIENT

DRUGS (2)
  1. OLANZAPINE [Suspect]
     Active Substance: OLANZAPINE
     Indication: Agitation
     Dosage: 5 MILLIGRAM (SINGLE DOSE OF OLANZAPINE (ODT))
     Route: 048
  2. OLANZAPINE [Suspect]
     Active Substance: OLANZAPINE
     Indication: Sedation

REACTIONS (15)
  - Neuroleptic malignant syndrome [Recovering/Resolving]
  - Metabolic acidosis [Recovering/Resolving]
  - Acute hepatic failure [Recovering/Resolving]
  - Acute kidney injury [Recovering/Resolving]
  - Hypotension [Recovering/Resolving]
  - Coagulopathy [Recovering/Resolving]
  - Aggression [Recovering/Resolving]
  - Dystonia [Recovering/Resolving]
  - Oculogyric crisis [Recovering/Resolving]
  - Diarrhoea [Recovering/Resolving]
  - Metabolic acidosis [Recovering/Resolving]
  - Hypoglycaemia [Recovered/Resolved]
  - Hypertransaminasaemia [Recovering/Resolving]
  - Electrolyte imbalance [Recovering/Resolving]
  - Depressed level of consciousness [Recovering/Resolving]
